FAERS Safety Report 23917756 (Version 6)
Quarter: 2024Q3

REPORT INFORMATION
  Report Type: Spontaneous
  Country: US (occurrence: US)
  Receive Date: 20240530
  Receipt Date: 20240801
  Transmission Date: 20241017
  Serious: Yes (Death, Hospitalization)
  Sender: JOHNSON AND JOHNSON
  Company Number: US-JNJFOC-20240564811

PATIENT
  Sex: Male

DRUGS (1)
  1. CARVYKTI [Suspect]
     Active Substance: CILTACABTAGENE AUTOLEUCEL
     Indication: Product used for unknown indication
     Route: 065
     Dates: start: 20240423, end: 20240423

REACTIONS (3)
  - Cardiac arrest [Fatal]
  - Facial paralysis [Unknown]
  - Immune effector cell-associated neurotoxicity syndrome [Not Recovered/Not Resolved]
